FAERS Safety Report 8545648-8 (Version None)
Quarter: 2012Q3

REPORT INFORMATION
  Report Type: 
  Country: None (occurrence: None)
  Receive Date: 20120727
  Receipt Date: 20120724
  Transmission Date: 20120928
  Serious: Yes (Other)
  Sender: FDA-Public Use
  Company Number: CO-PFIZER INC-2012155910

PATIENT
  Age: 81 Year
  Sex: Female

DRUGS (6)
  1. LYRICA [Suspect]
     Indication: HERPES ZOSTER
     Dosage: 75 MG, EVERY 12 HOURS
     Route: 048
     Dates: start: 20120416, end: 20120624
  2. HYDROCHLOROTHIAZIDE [Concomitant]
     Dosage: 25 MG, 1X/DAY
     Route: 048
     Dates: start: 20080101
  3. SALBUTAMOL [Concomitant]
  4. LYRICA [Suspect]
     Indication: NEURALGIA
     Dosage: 75 MG, 1X/DAY
     Route: 048
     Dates: start: 20120624
  5. LOSARTAN [Concomitant]
     Indication: HYPERTENSION
     Dosage: 500 MG, 1X/DAY
     Route: 048
     Dates: start: 20050101
  6. LOVASTATIN [Concomitant]
     Indication: HYPERTENSION
     Dosage: 500 MG, 1X/DAY
     Route: 048
     Dates: start: 20050101

REACTIONS (7)
  - OEDEMA PERIPHERAL [None]
  - GAIT DISTURBANCE [None]
  - LOGORRHOEA [None]
  - SOMNOLENCE [None]
  - MUSCLE SPASMS [None]
  - MYCOSIS FUNGOIDES [None]
  - DIZZINESS [None]
